FAERS Safety Report 14324673 (Version 1)
Quarter: 2017Q4

REPORT INFORMATION
  Report Type: Other
  Country: JP (occurrence: JP)
  Receive Date: 20171226
  Receipt Date: 20171226
  Transmission Date: 20180321
  Serious: Yes (Hospitalization)
  Sender: FDA-Public Use
  Company Number: JP-LEADING PHARMA-2037770

PATIENT
  Sex: Male
  Weight: 70 kg

DRUGS (1)
  1. FUROSEMIDE TABLETS , 20 MG, 40 MG AND 80 MG [Suspect]
     Active Substance: FUROSEMIDE

REACTIONS (2)
  - Cardiac disorder [None]
  - Vitamin B1 deficiency [Unknown]
